FAERS Safety Report 6167631-2 (Version None)
Quarter: 2009Q2

REPORT INFORMATION
  Report Type: 
  Country: None (occurrence: None)
  Receive Date: 20090424
  Receipt Date: 20080103
  Transmission Date: 20091009
  Serious: Yes (Death)
  Sender: FDA-Public Use
  Company Number: PHEH2008US00504

PATIENT
  Age: 92 Year
  Sex: Female

DRUGS (1)
  1. GLEEVEC [Suspect]
     Indication: MYELOID LEUKAEMIA
     Dates: start: 20030101

REACTIONS (1)
  - CARDIAC FAILURE CONGESTIVE [None]
